FAERS Safety Report 5102146-1 (Version None)
Quarter: 2006Q3

REPORT INFORMATION
  Report Type: 
  Country: None (occurrence: None)
  Receive Date: 20060731
  Receipt Date: 20060525
  Transmission Date: 20061208
  Serious: No
  Sender: FDA-Public Use
  Company Number: 2006PV014573

PATIENT
  Age: 39 Year
  Sex: Male

DRUGS (5)
  1. BYETTA [Suspect]
     Indication: DIABETES MELLITUS NON-INSULIN-DEPENDENT
     Dosage: SC
     Route: 058
     Dates: start: 20060423
  2. LANTUS [Concomitant]
  3. HUMULIN [Concomitant]
  4. GLUCOPHAGE XL [Concomitant]
  5. VYTORIN [Concomitant]

REACTIONS (3)
  - ABDOMINAL PAIN UPPER [None]
  - DRY MOUTH [None]
  - DYSPNOEA [None]
